FAERS Safety Report 5042442-X (Version None)
Quarter: 2006Q3

REPORT INFORMATION
  Report Type: 
  Country: None (occurrence: None)
  Receive Date: 20060705
  Receipt Date: 20060622
  Transmission Date: 20061208
  Serious: Yes (Other)
  Sender: FDA-Public Use
  Company Number: PHEH2006US08142

PATIENT
  Age: 62 Year
  Sex: Female

DRUGS (5)
  1. SANDOSTATIN LAR [Suspect]
     Indication: CARCINOID TUMOUR
     Dosage: UNK, QMO
     Dates: start: 20040601
  2. ALTACE [Concomitant]
  3. FOSAMAX [Concomitant]
  4. HYDROCHLOROTHIAZIDE [Concomitant]
  5. ZOLOFT [Concomitant]

REACTIONS (9)
  - ABDOMINAL DISTENSION [None]
  - BLOOD UREA INCREASED [None]
  - COLONOSCOPY [None]
  - DIARRHOEA [None]
  - ENDOSCOPY [None]
  - GASTROINTESTINAL HAEMORRHAGE [None]
  - HAEMATOCHEZIA [None]
  - HAEMORRHAGE [None]
  - IMPAIRED GASTRIC EMPTYING [None]
